FAERS Safety Report 15886132 (Version 1)
Quarter: 2019Q1

REPORT INFORMATION
  Report Type: Spontaneous
  Country: JP (occurrence: JP)
  Receive Date: 20190129
  Receipt Date: 20190129
  Transmission Date: 20190417
  Serious: Yes (Other)
  Sender: FDA-Public Use
  Company Number: PHJP2019JP001199

PATIENT

DRUGS (1)
  1. REVOLADE TAB [Suspect]
     Active Substance: ELTROMBOPAG
     Indication: PRODUCT USED FOR UNKNOWN INDICATION
     Dosage: 12.5 MG, EVERY OTHER DAY
     Route: 048

REACTIONS (4)
  - Infarction [Unknown]
  - Eosinophil count increased [Recovered/Resolved]
  - Concomitant disease aggravated [Unknown]
  - Skin disorder [Unknown]
